FAERS Safety Report 5706307-X (Version None)
Quarter: 2008Q2

REPORT INFORMATION
  Report Type: 
  Country: None (occurrence: None)
  Receive Date: 20080411
  Receipt Date: 20080326
  Transmission Date: 20081010
  Serious: No
  Sender: FDA-Public Use
  Company Number: 002#2#2008-00145

PATIENT
  Age: 64 Year
  Sex: Female
  Weight: 63.5036 kg

DRUGS (7)
  1. NEUPRO [Suspect]
     Indication: PARKINSON'S DISEASE
     Dosage: 2 MG/24H, 1 IN 1 D, TRANSDERMAL
     Route: 062
     Dates: start: 20070901, end: 20070901
  2. AZILECT [Concomitant]
  3. ADVAIR HFA [Concomitant]
  4. CO-Q-10 [Concomitant]
  5. ZOCOR [Concomitant]
  6. VITAMINS [Concomitant]
  7. OMEGA 3 [Concomitant]

REACTIONS (2)
  - CONDITION AGGRAVATED [None]
  - INSOMNIA [None]
